FAERS Safety Report 10406205 (Version 1)
Quarter: 2014Q3

REPORT INFORMATION
  Report Type: Spontaneous
  Country: TR (occurrence: TR)
  Receive Date: 20140825
  Receipt Date: 20140825
  Transmission Date: 20150326
  Serious: Yes (Other)
  Sender: FDA-Public Use
  Company Number: TR-MYLANLABS-2014M1001985

PATIENT

DRUGS (2)
  1. EPINEPHRINE. [Suspect]
     Active Substance: EPINEPHRINE
     Indication: HAEMODYNAMIC INSTABILITY
     Dosage: 0.01 MICROG/KG/MIN AS AN INFUSION
     Route: 050
  2. DOPAMINE [Suspect]
     Active Substance: DOPAMINE\DOPAMINE HYDROCHLORIDE
     Indication: HAEMODYNAMIC INSTABILITY
     Dosage: 10 MICROG/KG/MIN AS AN INFUSION
     Route: 050

REACTIONS (4)
  - Headache [None]
  - Corneal oedema [None]
  - Blindness transient [None]
  - Angle closure glaucoma [Recovered/Resolved]
